FAERS Safety Report 11457277 (Version 2)
Quarter: 2015Q3

REPORT INFORMATION
  Report Type: Spontaneous
  Country: TW (occurrence: TW)
  Receive Date: 20150904
  Receipt Date: 20150908
  Transmission Date: 20151125
  Serious: Yes (Hospitalization, Other)
  Sender: FDA-Public Use
  Company Number: TW-AMGEN-TWNSP2015089650

PATIENT
  Age: 49 Year
  Sex: Male

DRUGS (19)
  1. MAGNESIUM OXIDE. [Concomitant]
     Active Substance: MAGNESIUM OXIDE
     Dosage: 250 MG, 2X/DAY
     Route: 048
  2. PROMERAN [Concomitant]
     Dosage: 3.84 MG, 1X/DAY
     Route: 048
  3. MAGNESIUM OXIDE. [Concomitant]
     Active Substance: MAGNESIUM OXIDE
     Dosage: 250 MG, 2X/DAY
     Route: 048
  4. SULFASALAZINE. [Concomitant]
     Active Substance: SULFASALAZINE
     Dosage: 500 MG, 2X/DAY
     Route: 048
  5. XYZAL [Concomitant]
     Active Substance: LEVOCETIRIZINE DIHYDROCHLORIDE
     Dosage: 5 MG, 1X/DAY
     Route: 048
  6. DOXEPIN [Concomitant]
     Active Substance: DOXEPIN
     Dosage: UNK, AS NEEDED
  7. BRILINTA [Concomitant]
     Active Substance: TICAGRELOR
     Dosage: 90 MG, 2X/DAY
     Route: 048
  8. SULFASALAZINE. [Concomitant]
     Active Substance: SULFASALAZINE
     Dosage: 500 MG, 2X/DAY
     Route: 048
  9. SALAZINE [Concomitant]
     Active Substance: SULFASALAZINE
     Dosage: 1 DF, 1X/DAY (HS)
     Route: 048
  10. ENBREL [Suspect]
     Active Substance: ETANERCEPT
     Indication: ANKYLOSING SPONDYLITIS
     Dosage: 25 MG, 2X/WEEK
     Route: 058
     Dates: start: 201306
  11. ARHEUMA [Concomitant]
     Dosage: 20 MG, 1X/DAY
     Route: 048
  12. DENOSIN [Concomitant]
     Dosage: 1 DF, 1X/DAY (HS)
     Route: 048
  13. VOLTAREN [Concomitant]
     Active Substance: DICLOFENAC SODIUM
     Dosage: 75 MG, 2X/DAY
     Route: 048
  14. ULTRACET [Concomitant]
     Active Substance: ACETAMINOPHEN\TRAMADOL HYDROCHLORIDE
     Dosage: 1 DF, 4X/DAY (Q6H)
     Route: 048
  15. DOXEPIN [Concomitant]
     Active Substance: DOXEPIN
     Dosage: UNK, AS NEEDED
  16. RIVOTRIL [Concomitant]
     Active Substance: CLONAZEPAM
     Indication: INSOMNIA
     Dosage: 2 MG, 1X/DAY (HS)
     Route: 048
  17. SENNAPUR [Concomitant]
     Dosage: 25 MG, 1X/DAY
     Route: 048
  18. FURIDE [Concomitant]
     Dosage: 1 DF, 1X/DAY
     Route: 048
  19. BLOPRESS [Concomitant]
     Active Substance: CANDESARTAN CILEXETIL
     Dosage: 8 MG, 1X/DAY
     Route: 048

REACTIONS (27)
  - Acute coronary syndrome [Unknown]
  - Arthralgia [Unknown]
  - Back pain [Recovered/Resolved]
  - Pruritus [Unknown]
  - Oedema [Unknown]
  - Myositis [Unknown]
  - Weight increased [Unknown]
  - Red blood cell sedimentation rate decreased [Unknown]
  - White blood cell count increased [Unknown]
  - Pain in extremity [Not Recovered/Not Resolved]
  - Constipation [Not Recovered/Not Resolved]
  - Osteopenia [Unknown]
  - Cellulitis [Unknown]
  - C-reactive protein increased [Unknown]
  - Blood pressure fluctuation [Unknown]
  - Abdominal distension [Unknown]
  - Alanine aminotransferase increased [Unknown]
  - Femur fracture [Unknown]
  - Compression fracture [Unknown]
  - Red blood cell sedimentation rate increased [Unknown]
  - Spinal osteoarthritis [Unknown]
  - Dressler^s syndrome [Unknown]
  - Haemoglobin decreased [Unknown]
  - Myalgia [Unknown]
  - Glomerular filtration rate decreased [Unknown]
  - Blood creatinine decreased [Unknown]
  - Gastrooesophageal reflux disease [Unknown]

NARRATIVE: CASE EVENT DATE: 201309
